FAERS Safety Report 22103717 (Version 1)
Quarter: 2023Q1

REPORT INFORMATION
  Report Type: Spontaneous
  Country: CA (occurrence: CA)
  Receive Date: 20230316
  Receipt Date: 20230316
  Transmission Date: 20230417
  Serious: Yes (Other)
  Sender: FDA-Public Use
  Company Number: CA-PFIZER INC-202201179660

PATIENT
  Age: 28 Year
  Sex: Male
  Weight: 52 kg

DRUGS (7)
  1. ABRILADA [Suspect]
     Active Substance: ADALIMUMAB-AFZB
     Indication: Crohn^s disease
     Dosage: 160 MG, WEEK 0, 80 MG WEEK 2, THEN 40 MG Q 2 WEEKS; PREFILLED PEN
     Route: 058
     Dates: start: 20220727, end: 20220727
  2. ABRILADA [Suspect]
     Active Substance: ADALIMUMAB-AFZB
     Dosage: 80 MG, WEEK 2
     Route: 058
     Dates: start: 20220810, end: 20220810
  3. ABRILADA [Suspect]
     Active Substance: ADALIMUMAB-AFZB
     Dosage: 40 MG, EVERY 2 WEEKS - PREFILLED PEN
     Route: 058
     Dates: start: 20220824
  4. ABRILADA [Suspect]
     Active Substance: ADALIMUMAB-AFZB
     Dosage: 40 MG, EVERY 2 WEEKS - PREFILLED PEN
     Route: 058
     Dates: start: 20220906
  5. ABRILADA [Suspect]
     Active Substance: ADALIMUMAB-AFZB
     Dosage: 40 MG, EVERY 2 WEEKS - PREFILLED PEN
     Route: 058
     Dates: start: 20220920
  6. ABRILADA [Suspect]
     Active Substance: ADALIMUMAB-AFZB
     Dosage: 40 MG, EVERY 2 WEEKS - PREFILLED PEN
     Route: 058
     Dates: start: 20221229
  7. ABRILADA [Suspect]
     Active Substance: ADALIMUMAB-AFZB
     Dosage: 40 MG, EVERY 2 WEEKS - PREFILLED PEN
     Route: 058
     Dates: start: 20230114

REACTIONS (10)
  - Anal abscess [Not Recovered/Not Resolved]
  - Large intestinal obstruction [Recovered/Resolved]
  - Proctalgia [Not Recovered/Not Resolved]
  - Pain [Recovering/Resolving]
  - Toothache [Unknown]
  - Inappropriate schedule of product administration [Unknown]
  - Fatigue [Unknown]
  - Anaemia [Unknown]
  - Drug level decreased [Unknown]
  - Drug specific antibody present [Unknown]

NARRATIVE: CASE EVENT DATE: 20220901
